FAERS Safety Report 14237517 (Version 6)
Quarter: 2018Q3

REPORT INFORMATION
  Report Type: Report from Study
  Country: None (occurrence: IT)
  Receive Date: 20171129
  Receipt Date: 20180705
  Transmission Date: 20181010
  Serious: Yes (Other)
  Sender: FDA-Public Use
  Company Number: IT-BAUSCH-BL-2017-032577

PATIENT
  Age: 17 Year
  Sex: Female

DRUGS (2)
  1. CIPROFLOXACIN. [Suspect]
     Active Substance: CIPROFLOXACIN
     Indication: DRUG ABUSE
     Dosage: IN TOTAL; CUMULATIVE DOSE TO FIRST REACTION: 4 DF
     Route: 048
     Dates: start: 20170425, end: 20170425
  2. METFORMIN [Suspect]
     Active Substance: METFORMIN HYDROCHLORIDE
     Indication: DRUG ABUSE
     Dosage: IN TOTAL; CUMULATIVE DOSE TO FIRST REACTION: 4 DF
     Route: 048
     Dates: start: 20170425, end: 20170425

REACTIONS (4)
  - Somnolence [Recovering/Resolving]
  - Intentional self-injury [Recovering/Resolving]
  - Drug abuse [Recovering/Resolving]
  - Overdose [Recovering/Resolving]

NARRATIVE: CASE EVENT DATE: 20170425
